FAERS Safety Report 18223199 (Version 2)
Quarter: 2020Q3

REPORT INFORMATION
  Report Type: Report from Study
  Country: IN (occurrence: IN)
  Receive Date: 20200902
  Receipt Date: 20200905
  Transmission Date: 20201103
  Serious: Yes (Death, Other)
  Sender: FDA-Public Use
  Company Number: NVSC2020IN107549

PATIENT
  Age: 77 Year
  Sex: Female

DRUGS (3)
  1. TASIGNA [Suspect]
     Active Substance: NILOTINIB
     Dosage: 400 MG, BID
     Route: 048
     Dates: start: 20200820
  2. TASIGNA [Suspect]
     Active Substance: NILOTINIB
     Indication: CHRONIC MYELOID LEUKAEMIA
     Dosage: 400 MG, BID
     Route: 048
     Dates: start: 20200120, end: 20200803
  3. TASIGNA [Suspect]
     Active Substance: NILOTINIB
     Dosage: 200 MG, BID
     Route: 048
     Dates: start: 20200804, end: 20200819

REACTIONS (8)
  - Kidney infection [Not Recovered/Not Resolved]
  - Pyrexia [Unknown]
  - Malignant neoplasm progression [Fatal]
  - Hyperglycaemia [Not Recovered/Not Resolved]
  - Micturition disorder [Not Recovered/Not Resolved]
  - Pyrexia [Recovered/Resolved]
  - Chronic myeloid leukaemia [Fatal]
  - Product use issue [Unknown]

NARRATIVE: CASE EVENT DATE: 20200412
